FAERS Safety Report 6916848-5 (Version None)
Quarter: 2010Q3

REPORT INFORMATION
  Report Type: 
  Country: None (occurrence: None)
  Receive Date: 20100809
  Receipt Date: 20100809
  Transmission Date: 20110219
  Serious: Yes (Other)
  Sender: FDA-Public Use
  Company Number: None

PATIENT
  Age: 30 Year
  Sex: Female
  Weight: 121.564 kg

DRUGS (2)
  1. YAZ [Suspect]
     Indication: CYST
     Dosage: EVERY DAY
     Dates: start: 20080506, end: 20090122
  2. YAZ [Suspect]
     Indication: HAEMORRHAGE
     Dosage: EVERY DAY
     Dates: start: 20080506, end: 20090122

REACTIONS (1)
  - CHOLELITHIASIS [None]
